FAERS Safety Report 9206471 (Version 2)
Quarter: 2013Q2

REPORT INFORMATION
  Report Type: Spontaneous
  Country: VE (occurrence: VE)
  Receive Date: 20130403
  Receipt Date: 20130410
  Transmission Date: 20140414
  Serious: Yes (Other)
  Sender: FDA-Public Use
  Company Number: PHHY2013VE024818

PATIENT
  Age: 82 Year
  Sex: Female

DRUGS (7)
  1. ACLASTA [Suspect]
     Indication: OSTEOPOROSIS
     Dosage: 5 MG, ANNUALLY
     Route: 042
     Dates: start: 2007
  2. ACLASTA [Suspect]
     Dosage: 5 MG, ANNUALLY
     Route: 042
     Dates: start: 2008
  3. ACLASTA [Suspect]
     Dosage: 5 MG, ANNUALLY
     Route: 042
     Dates: start: 2009
  4. ACLASTA [Suspect]
     Dosage: 5 MG, ANNUALLY
     Route: 042
     Dates: start: 2010
  5. ACLASTA [Suspect]
     Dosage: 5 MG, ANNUALLY
     Route: 042
     Dates: start: 201110
  6. ZOMETA [Suspect]
     Indication: OSTEOPOROSIS
     Dosage: 4 MG, ANNUALLY
     Route: 042
     Dates: start: 2005
  7. ZOMETA [Suspect]
     Dosage: 4 MG, ANNUALLY
     Route: 042
     Dates: start: 2006

REACTIONS (3)
  - Fall [Recovered/Resolved]
  - Road traffic accident [Recovered/Resolved]
  - Bone density abnormal [Not Recovered/Not Resolved]
